FAERS Safety Report 11420970 (Version 1)
Quarter: 2015Q3

REPORT INFORMATION
  Report Type: Report from Study
  Country: US (occurrence: US)
  Receive Date: 20150826
  Receipt Date: 20150826
  Transmission Date: 20151125
  Serious: No
  Sender: FDA-Public Use
  Company Number: PHHY2015US070904

PATIENT
  Age: 44 Year
  Sex: Female

DRUGS (2)
  1. GILENYA [Suspect]
     Active Substance: FINGOLIMOD HYDROCHLORIDE
     Indication: MULTIPLE SCLEROSIS
     Route: 048
  2. LIDODERM [Concomitant]
     Active Substance: LIDOCAINE
     Indication: POST HERPETIC NEURALGIA
     Dosage: 5 %, UNK
     Route: 065
     Dates: start: 20150420

REACTIONS (4)
  - Scab [Unknown]
  - Flushing [Recovered/Resolved]
  - Lymphocyte count decreased [Unknown]
  - Skin disorder [Unknown]

NARRATIVE: CASE EVENT DATE: 20150326
